FAERS Safety Report 10995444 (Version 2)
Quarter: 2015Q2

REPORT INFORMATION
  Report Type: Spontaneous
  Country: US (occurrence: US)
  Receive Date: 20150407
  Receipt Date: 20150407
  Transmission Date: 20150821
  Serious: No
  Sender: FDA-Public Use
  Company Number: US-SA-2014SA153204

PATIENT
  Age: 71 Year
  Sex: Female

DRUGS (1)
  1. ALLEGRA-D [Suspect]
     Active Substance: FEXOFENADINE\PSEUDOEPHEDRINE
     Route: 048
     Dates: start: 20141031

REACTIONS (3)
  - Nervousness [Unknown]
  - Feeling jittery [Unknown]
  - Insomnia [Unknown]
